FAERS Safety Report 8548703-1 (Version None)
Quarter: 2012Q3

REPORT INFORMATION
  Report Type: 
  Country: None (occurrence: None)
  Receive Date: 20120730
  Receipt Date: 20120720
  Transmission Date: 20120928
  Serious: Yes (Hospitalization, Other)
  Sender: FDA-Public Use
  Company Number: PHHY2012BR063396

PATIENT
  Sex: Female

DRUGS (2)
  1. TEGRETOL [Suspect]
     Indication: CONVULSION
     Dosage: 1.5 DF, BID
     Dates: start: 20070101
  2. ASPIRIN [Suspect]
     Indication: ISCHAEMIC STROKE
     Dosage: 2 DF, DAILY
     Route: 048

REACTIONS (15)
  - ABDOMINAL PAIN [None]
  - COLLAGEN DISORDER [None]
  - THROMBOSIS [None]
  - MUSCULOSKELETAL PAIN [None]
  - HYPERCOAGULATION [None]
  - ROTAVIRUS INFECTION [None]
  - ORAL CANDIDIASIS [None]
  - LIGAMENT LAXITY [None]
  - CAROTID ARTERY DISSECTION [None]
  - VENOUS VALVE RUPTURED [None]
  - MYASTHENIA GRAVIS [None]
  - EYELID PTOSIS [None]
  - TONGUE PARALYSIS [None]
  - SPEECH DISORDER [None]
  - JOINT DISLOCATION [None]
